FAERS Safety Report 5455402-1 (Version None)
Quarter: 2007Q3

REPORT INFORMATION
  Report Type: 
  Country: None (occurrence: None)
  Receive Date: 20070914
  Receipt Date: 20070830
  Transmission Date: 20080115
  Serious: Yes (Hospitalization)
  Sender: FDA-Public Use
  Company Number: TKT01200700429

PATIENT
  Age: 9 Year
  Sex: Male

DRUGS (1)
  1. IDURSULFASE             (IDURSULFASE) [Suspect]
     Indication: MUCOPOLYSACCHARIDOSIS II
     Dosage: 0.58 MG/KG, 1 IN 1 WK), INTRAVENOUS DRIP
     Route: 041
     Dates: start: 20070221

REACTIONS (1)
  - RESPIRATORY TRACT INFECTION [None]
